FAERS Safety Report 10900521 (Version 1)
Quarter: 2015Q1

REPORT INFORMATION
  Report Type: Spontaneous
  Country: US (occurrence: None)
  Receive Date: 20150303
  Receipt Date: 20150303
  Transmission Date: 20150721
  Serious: Yes (Hospitalization)
  Sender: FDA-Public Use
  Company Number: None

PATIENT
  Age: 5 Year
  Sex: Female
  Weight: 23.1 kg

DRUGS (6)
  1. CYTARABINE. [Suspect]
     Active Substance: CYTARABINE
  2. DEXAMETHASONE. [Suspect]
     Active Substance: DEXAMETHASONE
  3. METHOTREXATE [Suspect]
     Active Substance: METHOTREXATE
  4. VINCRISTINE SULFATE. [Suspect]
     Active Substance: VINCRISTINE SULFATE
  5. DAUNORUBICIN [Suspect]
     Active Substance: DAUNORUBICIN
  6. ONCASPAR [Suspect]
     Active Substance: PEGASPARGASE

REACTIONS (24)
  - Staphylococcal infection [None]
  - Heart sounds abnormal [None]
  - Cardiomegaly [None]
  - Haematemesis [None]
  - Pericardial effusion [None]
  - Dilatation ventricular [None]
  - Prothrombin time prolonged [None]
  - Blood albumin decreased [None]
  - Left atrial dilatation [None]
  - Ejection fraction decreased [None]
  - Activated partial thromboplastin time prolonged [None]
  - Oedema [None]
  - Tachycardia [None]
  - Mitral valve incompetence [None]
  - Tricuspid valve incompetence [None]
  - Blood bilirubin increased [None]
  - Pyrexia [None]
  - Hypotension [None]
  - Ascites [None]
  - Left ventricular dysfunction [None]
  - Bilirubin conjugated increased [None]
  - Brain natriuretic peptide increased [None]
  - Pulmonary oedema [None]
  - Hepatic function abnormal [None]

NARRATIVE: CASE EVENT DATE: 20150223
